FAERS Safety Report 5527668-0 (Version None)
Quarter: 2007Q4

REPORT INFORMATION
  Report Type: 
  Country: None (occurrence: None)
  Receive Date: 20071128
  Receipt Date: 20071116
  Transmission Date: 20080405
  Serious: Yes (Hospitalization)
  Sender: FDA-Public Use
  Company Number: IT-JNJFOC-20071107998

PATIENT
  Age: 30 Year
  Sex: Male

DRUGS (4)
  1. INFLIXIMAB [Suspect]
     Route: 042
  2. INFLIXIMAB [Suspect]
     Dosage: 2 WEEKS LATER
     Route: 042
  3. INFLIXIMAB [Suspect]
     Indication: BEHCET'S SYNDROME
     Route: 042
  4. METHOTREXATE [Concomitant]

REACTIONS (2)
  - PNEUMONIA LEGIONELLA [None]
  - PULMONARY TUBERCULOSIS [None]
